FAERS Safety Report 7879412-X (Version None)
Quarter: 2011Q4

REPORT INFORMATION
  Report Type: 
  Country: None (occurrence: None)
  Receive Date: 20111101
  Receipt Date: 20111026
  Transmission Date: 20120403
  Serious: Yes (Congenital Anomaly)
  Sender: FDA-Public Use
  Company Number: US-PFIZER INC-2011262821

PATIENT
  Sex: Male
  Weight: 3.32 kg

DRUGS (1)
  1. ZOLOFT [Suspect]
     Dosage: 50 MG, 1X/DAY
     Route: 064

REACTIONS (2)
  - CONGENITAL ANOMALY [None]
  - MATERNAL EXPOSURE DURING PREGNANCY [None]
